FAERS Safety Report 7442959 (Version 3)
Quarter: 2012Q4

REPORT INFORMATION
  Report Type: 
  Country: KR (occurrence: KR)
  Receive Date: 20100628
  Receipt Date: 20120919
  Transmission Date: 20130627
  Serious: Yes (Hospitalization)
  Sender: FDA-Public Use
  Company Number: PHHO2010KR09433

PATIENT
  Age: 60 Year
  Sex: Male
  Weight: 54.8 kg

DRUGS (6)
  1. AFINITOR [Suspect]
     Indication: GASTRIC CANCER
     Dosage: 10 mg, UNK
     Route: 048
     Dates: start: 20100517, end: 20100617
  2. XELODA [Concomitant]
     Dosage: 2000 mg, UNK
     Dates: start: 20100517, end: 20100617
  3. TAZOCIN [Concomitant]
     Dosage: 4.5 g, TID
     Dates: start: 20100617, end: 20100621
  4. VANCOMYCIN HYDROCHLORIDE [Concomitant]
     Dosage: 0.75 g, BID
     Dates: start: 20100617, end: 20100621
  5. LEVOFLOXACIN [Concomitant]
     Dosage: 750 mg, BID
     Dates: start: 20100617, end: 20100621
  6. WARFARIN [Concomitant]
     Dosage: 5 mg, BID
     Dates: start: 20100617, end: 20100621

REACTIONS (8)
  - Lobar pneumonia [Not Recovered/Not Resolved]
  - Pulmonary embolism [Not Recovered/Not Resolved]
  - Somnolence [Not Recovered/Not Resolved]
  - Headache [Not Recovered/Not Resolved]
  - Pyrexia [Not Recovered/Not Resolved]
  - Sputum discoloured [Not Recovered/Not Resolved]
  - International normalised ratio increased [None]
  - Prothrombin time prolonged [None]
